FAERS Safety Report 7656188-2 (Version None)
Quarter: 2011Q3

REPORT INFORMATION
  Report Type: 
  Country: None (occurrence: None)
  Receive Date: 20110801
  Receipt Date: 20110714
  Transmission Date: 20111222
  Serious: Yes (Hospitalization)
  Sender: FDA-Public Use
  Company Number: 2011SP033003

PATIENT
  Age: 45 Year
  Sex: Female

DRUGS (1)
  1. MERCILON (DESOGESTREL/ETHINYLESTRAIDOL /00570801/) [Suspect]
     Indication: CONTRACEPTION
     Dates: start: 20070206, end: 20080301

REACTIONS (17)
  - MUSCLE SPASMS [None]
  - PARESIS [None]
  - PERONEAL NERVE PALSY [None]
  - PAIN IN EXTREMITY [None]
  - MENTAL DISORDER [None]
  - ABDOMINAL PAIN [None]
  - BRAIN STEM INFARCTION [None]
  - PANIC DISORDER [None]
  - MYOPATHY [None]
  - AGORAPHOBIA [None]
  - BACK PAIN [None]
  - URINARY RETENTION [None]
  - HYPOAESTHESIA [None]
  - OVARIAN CYST [None]
  - DEPRESSION [None]
  - SPINAL DISORDER [None]
  - THROMBOSIS [None]
